FAERS Safety Report 12002889 (Version 4)
Quarter: 2016Q1

REPORT INFORMATION
  Report Type: Report from Study
  Country: BR (occurrence: BR)
  Receive Date: 20160204
  Receipt Date: 20160329
  Transmission Date: 20160526
  Serious: No
  Sender: FDA-Public Use
  Company Number: PHHY2015BR172496

PATIENT
  Sex: Female
  Weight: 55 kg

DRUGS (1)
  1. TASIGNA [Suspect]
     Active Substance: NILOTINIB
     Indication: CHRONIC MYELOID LEUKAEMIA
     Dosage: 2 DF, QD (ONCE IN THE MORNING)
     Route: 048
     Dates: start: 20151110

REACTIONS (9)
  - Dry skin [Unknown]
  - Inappropriate schedule of drug administration [Unknown]
  - Skin mass [Unknown]
  - Somnolence [Unknown]
  - Thrombocytopenia [Not Recovered/Not Resolved]
  - Lethargy [Unknown]
  - Haematotoxicity [Unknown]
  - Pruritus [Unknown]
  - Rash [Recovering/Resolving]
